FAERS Safety Report 6543138-5 (Version None)
Quarter: 2010Q1

REPORT INFORMATION
  Report Type: 
  Country: None (occurrence: None)
  Receive Date: 20100120
  Receipt Date: 20100111
  Transmission Date: 20100710
  Serious: Yes (Hospitalization, Other)
  Sender: FDA-Public Use
  Company Number: US-AMGEN-QUU380645

PATIENT
  Sex: Female
  Weight: 76.7 kg

DRUGS (10)
  1. ENBREL [Suspect]
     Indication: RHEUMATOID ARTHRITIS
     Route: 058
     Dates: start: 20090201, end: 20091027
  2. LISINOPRIL [Concomitant]
  3. MOBIC [Concomitant]
  4. IMURAN [Concomitant]
  5. ACTONEL [Concomitant]
  6. COREG [Concomitant]
  7. CALCIUM [Concomitant]
  8. VITAMIN D [Concomitant]
  9. ALDACTONE [Concomitant]
  10. POTASSIUM [Concomitant]

REACTIONS (9)
  - ARTHRALGIA [None]
  - DIARRHOEA [None]
  - DRY SKIN [None]
  - DYSPEPSIA [None]
  - ERYTHEMA [None]
  - GLOMERULONEPHRITIS [None]
  - JOINT SWELLING [None]
  - NEPHROTIC SYNDROME [None]
  - RHEUMATOID FACTOR INCREASED [None]
